FAERS Safety Report 12088565 (Version 1)
Quarter: 2016Q1

REPORT INFORMATION
  Report Type: Spontaneous
  Country: GB (occurrence: GB)
  Receive Date: 20160218
  Receipt Date: 20160218
  Transmission Date: 20160526
  Serious: Yes (Other)
  Sender: FDA-Public Use
  Company Number: GB-ACCORD-037799

PATIENT
  Age: 70 Year
  Sex: Male
  Weight: 107 kg

DRUGS (11)
  1. CLOPIDOGREL [Suspect]
     Active Substance: CLOPIDOGREL BISULFATE
     Indication: PRODUCT USED FOR UNKNOWN INDICATION
     Dosage: WITH FOOD
     Dates: start: 20151106
  2. ATORVASTATIN/ATORVASTATIN CALCIUM [Concomitant]
     Dates: start: 20151106
  3. QUINIDINE [Concomitant]
     Active Substance: QUINIDINE
     Dates: start: 20150512
  4. ASPIRIN. [Concomitant]
     Active Substance: ASPIRIN
     Dosage: MIDDLE OF MAIN MEAL
     Dates: start: 20150512, end: 20151106
  5. LANSOPRAZOLE. [Concomitant]
     Active Substance: LANSOPRAZOLE
     Dates: start: 20150512
  6. LERCANIDIPINE [Concomitant]
     Active Substance: LERCANIDIPINE
     Dates: start: 20150512
  7. LOSARTAN/LOSARTAN POTASSIUM [Concomitant]
     Dates: start: 20150512
  8. COCODAMOL [Concomitant]
     Active Substance: ACETAMINOPHEN\CODEINE PHOSPHATE
     Dosage: TAKE 1 OR 2 4 TIMES/DAY WHEN REQUIRED
     Dates: start: 20150512
  9. MELOXICAM. [Interacting]
     Active Substance: MELOXICAM
     Indication: PRODUCT USED FOR UNKNOWN INDICATION
     Dates: start: 20150512
  10. BISOPROLOL [Concomitant]
     Active Substance: BISOPROLOL
     Dates: start: 20150512
  11. SIMVASTATIN. [Concomitant]
     Active Substance: SIMVASTATIN
     Dosage: AT NIGHT
     Dates: start: 20150512, end: 20151106

REACTIONS (2)
  - Drug interaction [Unknown]
  - Haemorrhage [Recovering/Resolving]

NARRATIVE: CASE EVENT DATE: 20160128
